FAERS Safety Report 8761016 (Version 1)
Quarter: 2012Q4

REPORT INFORMATION
  Report Type: 
  Country: US (occurrence: US)
  Receive Date: 20120830
  Receipt Date: 20120830
  Transmission Date: 20130627
  Serious: Yes (Hospitalization, Disabling, Other)
  Sender: FDA-Public Use
  Company Number: US-009507513-0911USA02013

PATIENT

DRUGS (6)
  1. FOSAMAX [Suspect]
     Indication: OSTEOPOROSIS PROPHYLAXIS
     Route: 048
     Dates: start: 2000, end: 20010331
  2. FOSAMAX [Suspect]
     Dosage: 70 mg, QW
     Route: 048
     Dates: start: 20010321, end: 20071203
  3. FOSAMAX [Suspect]
     Dosage: 70 mg, QW
     Route: 048
     Dates: start: 2008, end: 20090311
  4. FOSAMAX [Suspect]
     Route: 048
  5. ALENDRONATE SODIUM [Suspect]
     Dosage: 70 mg, QW
     Route: 048
     Dates: start: 20071203, end: 20090311
  6. HORMONES (UNSPECIFIED) [Concomitant]
     Dates: start: 1990, end: 2000

REACTIONS (40)
  - Low turnover osteopathy [Unknown]
  - Femur fracture [Not Recovered/Not Resolved]
  - Depression [Not Recovered/Not Resolved]
  - Anxiety [Not Recovered/Not Resolved]
  - Hypertension [Not Recovered/Not Resolved]
  - Blood cholesterol increased [Not Recovered/Not Resolved]
  - Gallbladder disorder [Unknown]
  - Retinal disorder [Unknown]
  - Tooth fracture [Unknown]
  - Gastrointestinal disorder [Unknown]
  - Transient ischaemic attack [Unknown]
  - Osteoarthritis [Unknown]
  - Spinal column stenosis [Unknown]
  - Spinal osteoarthritis [Unknown]
  - Intervertebral disc space narrowing [Unknown]
  - Back pain [Unknown]
  - Intervertebral disc protrusion [Unknown]
  - Renal cyst [Unknown]
  - Vertigo [Unknown]
  - Sensory disturbance [Unknown]
  - Abdominal discomfort [Unknown]
  - Salivary hypersecretion [Unknown]
  - Cerebrovascular accident [Unknown]
  - Hyperlipidaemia [Unknown]
  - Osteoporosis [Unknown]
  - Chest pain [Unknown]
  - Coronary artery disease [Unknown]
  - Glucose tolerance impaired [Unknown]
  - Bone pain [Unknown]
  - Diabetes mellitus [Unknown]
  - Osteochondroma [Unknown]
  - Lumbar spinal stenosis [Unknown]
  - Intervertebral disc degeneration [Unknown]
  - Intervertebral disc protrusion [Unknown]
  - Retinal tear [Unknown]
  - Contusion [Unknown]
  - Glaucoma [Unknown]
  - Pain in extremity [Unknown]
  - Vitamin D decreased [Unknown]
  - Visual impairment [Unknown]
